FAERS Safety Report 21759522 (Version 1)
Quarter: 2022Q4

REPORT INFORMATION
  Report Type: Spontaneous
  Country: US (occurrence: None)
  Receive Date: 20221220
  Receipt Date: 20221220
  Transmission Date: 20230113
  Serious: Yes (Hospitalization)
  Sender: FDA-Public Use
  Company Number: None

PATIENT
  Age: 78 Year
  Sex: Male
  Weight: 138.1 kg

DRUGS (1)
  1. CISPLATIN [Suspect]
     Active Substance: CISPLATIN
     Dates: end: 20200318

REACTIONS (5)
  - Cellulitis [None]
  - Lymphocele [None]
  - Escherichia infection [None]
  - Staphylococcal infection [None]
  - Staphylococcal bacteraemia [None]

NARRATIVE: CASE EVENT DATE: 20220613
